FAERS Safety Report 5832292-6 (Version None)
Quarter: 2008Q3

REPORT INFORMATION
  Report Type: 
  Country: None (occurrence: None)
  Receive Date: 20080804
  Receipt Date: 20080731
  Transmission Date: 20090109
  Serious: Yes (Life-Threatening, Hospitalization, Disabling, Other)
  Sender: FDA-Public Use
  Company Number: A0736968A

PATIENT
  Age: 75 Year
  Sex: Female
  Weight: 103.1 kg

DRUGS (23)
  1. REQUIP [Suspect]
     Indication: RESTLESS LEGS SYNDROME
     Dosage: .5 PER DAY
     Route: 048
     Dates: start: 20080627, end: 20080703
  2. COUMADIN [Concomitant]
  3. DIGOXIN [Concomitant]
  4. ALTACE [Concomitant]
  5. VITAMIN B-12 [Concomitant]
  6. OXYGEN [Concomitant]
  7. BUMEX [Concomitant]
  8. AMARYL [Concomitant]
  9. ALDACTONE [Concomitant]
  10. CARDISON [Concomitant]
  11. PRIMIDONE [Concomitant]
  12. GABAPENTIN [Concomitant]
  13. LEXAPRO [Concomitant]
  14. HUMULIN R [Concomitant]
  15. POTASSIUM PLUS [Concomitant]
  16. LIPITOR [Concomitant]
  17. OXYGEN [Concomitant]
  18. PHENERGAN HCL [Concomitant]
  19. ALBUTEROL [Concomitant]
  20. PERCOCET [Concomitant]
  21. PLAVIX [Concomitant]
  22. PREDNISONE [Concomitant]
  23. LANTUS [Concomitant]

REACTIONS (2)
  - HYPERGLYCAEMIA [None]
  - VOMITING [None]
